FAERS Safety Report 12911119 (Version 2)
Quarter: 2016Q4

REPORT INFORMATION
  Report Type: Spontaneous
  Country: US (occurrence: US)
  Receive Date: 20161104
  Receipt Date: 20161205
  Transmission Date: 20170207
  Serious: No
  Sender: FDA-Public Use
  Company Number: US-PFIZER INC-2016512380

PATIENT
  Age: 65 Year
  Sex: Female
  Weight: 73 kg

DRUGS (4)
  1. METFORMIN [Concomitant]
     Active Substance: METFORMIN HYDROCHLORIDE
     Indication: TYPE 2 DIABETES MELLITUS
     Dosage: UNK UNK, DAILY (2000MG, TABLET, ORALLY, DAILY)
     Route: 048
     Dates: start: 2007
  2. SYNTHROID [Concomitant]
     Active Substance: LEVOTHYROXINE SODIUM
     Indication: THYROID DISORDER
     Dosage: UNK UNK, 1X/DAY (TABLET, ORAL, ONCE A DAY)
     Route: 048
     Dates: start: 1978
  3. ALSUMA [Suspect]
     Active Substance: SUMATRIPTAN SUCCINATE
     Indication: MIGRAINE
     Dosage: UNK UNK, 1X/DAY (INJECTION, INTRA MUSCULAR, ONCE/ONCE A DAY)
     Route: 030
     Dates: start: 201610, end: 201610
  4. INSULIN [Concomitant]
     Active Substance: INSULIN NOS
     Indication: TYPE 2 DIABETES MELLITUS
     Dosage: UNK UNK, DAILY (10-14UNITS, INJECTABLE PEN, DAILY)
     Dates: start: 2012

REACTIONS (3)
  - Injection site bruising [Recovered/Resolved]
  - Expired product administered [Unknown]
  - Incorrect route of drug administration [Unknown]

NARRATIVE: CASE EVENT DATE: 201610
